FAERS Safety Report 8974045 (Version 1)
Quarter: 2012Q4

REPORT INFORMATION
  Report Type: 
  Country: US (occurrence: US)
  Receive Date: 20121218
  Receipt Date: 20121218
  Transmission Date: 20130627
  Serious: Yes (Other)
  Sender: FDA-Public Use
  Company Number: US-BRISTOL-MYERS SQUIBB COMPANY-16399099

PATIENT
  Sex: Male

DRUGS (1)
  1. ABILIFY [Suspect]
     Dosage: Dose increased:15mg once daily

REACTIONS (1)
  - Tardive dyskinesia [Not Recovered/Not Resolved]
